FAERS Safety Report 23171304 (Version 1)
Quarter: 2023Q4

REPORT INFORMATION
  Report Type: Spontaneous
  Country: JP (occurrence: JP)
  Receive Date: 20231110
  Receipt Date: 20231110
  Transmission Date: 20240109
  Serious: Yes (Hospitalization)
  Sender: FDA-Public Use
  Company Number: JP-MYLANLABS-2023M1117442

PATIENT
  Age: 8 Decade

DRUGS (2)
  1. LYRICA [Suspect]
     Active Substance: PREGABALIN
     Indication: Herpes zoster
     Route: 048
     Dates: start: 20231020, end: 20231025
  2. AMENAMEVIR [Concomitant]
     Active Substance: AMENAMEVIR
     Indication: Herpes zoster
     Dosage: UNK
     Route: 048
     Dates: start: 20231020

REACTIONS (3)
  - Amnesia [Recovered/Resolved]
  - Speech disorder [Recovered/Resolved]
  - Off label use [Unknown]

NARRATIVE: CASE EVENT DATE: 20231025
